FAERS Safety Report 24629405 (Version 1)
Quarter: 2024Q4

REPORT INFORMATION
  Report Type: Spontaneous
  Country: US (occurrence: US)
  Receive Date: 20241118
  Receipt Date: 20241118
  Transmission Date: 20250115
  Serious: Yes (Hospitalization, Other)
  Sender: Haleon PLC
  Company Number: US-002147023-NVSC2024US126477

PATIENT
  Age: 82 Year
  Sex: Female
  Weight: 73.02 kg

DRUGS (17)
  1. VOLTAREN [Suspect]
     Active Substance: DICLOFENAC SODIUM
     Indication: Product used for unknown indication
     Dosage: APPLY 2 GM TOPICALLY 4 TIMES A DAY AS NEEDED
     Route: 061
  2. LEVOTHYROXINE SODIUM [Concomitant]
     Active Substance: LEVOTHYROXINE SODIUM
     Indication: Product used for unknown indication
  3. METFORMIN HYDROCHLORIDE [Concomitant]
     Active Substance: METFORMIN HYDROCHLORIDE
     Indication: Product used for unknown indication
  4. OXYBUTYNIN [Concomitant]
     Active Substance: OXYBUTYNIN
     Indication: Product used for unknown indication
  5. SANDOSTATIN [Suspect]
     Active Substance: OCTREOTIDE ACETATE
     Indication: Product used for unknown indication
     Dosage: 4 WEEKS;
  6. ONDANSETRON [Concomitant]
     Active Substance: ONDANSETRON
     Indication: Product used for unknown indication
  7. LANREOTIDE [Concomitant]
     Active Substance: LANREOTIDE
     Indication: Product used for unknown indication
  8. HYDROCORTISONE [Concomitant]
     Active Substance: HYDROCORTISONE
     Indication: Product used for unknown indication
  9. AFINITOR [Suspect]
     Active Substance: EVEROLIMUS
     Indication: Lung neoplasm malignant
     Route: 048
     Dates: start: 20231104, end: 20240627
  10. AFINITOR [Suspect]
     Active Substance: EVEROLIMUS
     Indication: Neuroendocrine carcinoma
  11. TOPROL XL [Concomitant]
     Active Substance: METOPROLOL SUCCINATE
     Indication: Product used for unknown indication
  12. ZOMETA [Suspect]
     Active Substance: ZOLEDRONIC ACID
     Indication: Lung neoplasm malignant
  13. ZOMETA [Suspect]
     Active Substance: ZOLEDRONIC ACID
     Indication: Neuroendocrine carcinoma
  14. MUPIROCIN [Concomitant]
     Active Substance: MUPIROCIN
     Indication: Product used for unknown indication
  15. SANDOSTATIN MONOJECT [Concomitant]
     Indication: Product used for unknown indication
     Dosage: MONOJECT SAFETY NEEDLE
  16. SANDOSTATIN LAR DEPOT [Concomitant]
     Active Substance: OCTREOTIDE ACETATE
     Indication: Product used for unknown indication
     Dosage: READYFILL SYRINGE
  17. SANDOSTATIN LAR DEPOT [Concomitant]
     Active Substance: OCTREOTIDE ACETATE
     Indication: Product used for unknown indication
     Dosage: VIAL ADAPTOR

REACTIONS (20)
  - Renal failure [Recovered/Resolved with Sequelae]
  - Oedema peripheral [Unknown]
  - Asthenia [Unknown]
  - Headache [Recovering/Resolving]
  - Vomiting [Unknown]
  - Adrenal insufficiency [Unknown]
  - Pneumonia aspiration [Unknown]
  - Dyspnoea exertional [Unknown]
  - Pleural effusion [Unknown]
  - Pneumonia [Unknown]
  - Atrial thrombosis [Unknown]
  - Hypotension [Unknown]
  - Mucosal inflammation [Unknown]
  - Swelling [Unknown]
  - Pituitary tumour [Unknown]
  - Peripheral swelling [Unknown]
  - Tenderness [Unknown]
  - Pain in jaw [Recovered/Resolved]
  - Generalised oedema [Unknown]
  - Arthralgia [Recovered/Resolved]

NARRATIVE: CASE EVENT DATE: 20240306
